FAERS Safety Report 7033146-2 (Version None)
Quarter: 2010Q4

REPORT INFORMATION
  Report Type: 
  Country: None (occurrence: None)
  Receive Date: 20101007
  Receipt Date: 20100928
  Transmission Date: 20110411
  Serious: Yes (Hospitalization)
  Sender: FDA-Public Use
  Company Number: IE-JNJFOC-20100908527

PATIENT
  Age: 74 Year
  Sex: Female

DRUGS (11)
  1. REMICADE [Suspect]
     Indication: CROHN'S DISEASE
     Route: 042
  2. PLAVIX [Concomitant]
  3. ASPIRIN [Concomitant]
  4. PIRITON [Concomitant]
  5. PARACETAMOL [Concomitant]
  6. CRESTOR [Concomitant]
  7. LOSEC MUPS (OMEPRAZOLE) [Concomitant]
  8. FUROSEMIDE [Concomitant]
  9. BISOCOR [Concomitant]
  10. MICARDIS HCT [Concomitant]
  11. HYDROCORTISONE [Concomitant]

REACTIONS (6)
  - BACK PAIN [None]
  - CHEST PAIN [None]
  - FLUSHING [None]
  - HYPERHIDROSIS [None]
  - HYPERTENSION [None]
  - TACHYCARDIA [None]
